FAERS Safety Report 4736603-4 (Version None)
Quarter: 2005Q3

REPORT INFORMATION
  Report Type: 
  Country: None (occurrence: None)
  Receive Date: 20050804
  Receipt Date: 20050720
  Transmission Date: 20060218
  Serious: Yes (Hospitalization)
  Sender: FDA-Public Use
  Company Number: 2005BI013818

PATIENT
  Age: 57 Year
  Sex: Female
  Weight: 76.2043 kg

DRUGS (8)
  1. AVONEX [Suspect]
     Indication: MULTIPLE SCLEROSIS
     Dosage: 10 UG QW IM; 15 UG QW IM; 30 UG QW IM
     Route: 030
     Dates: start: 20050401, end: 20050401
  2. AVONEX [Suspect]
     Indication: MULTIPLE SCLEROSIS
     Dosage: 10 UG QW IM; 15 UG QW IM; 30 UG QW IM
     Route: 030
     Dates: start: 20050401, end: 20050401
  3. AVONEX [Suspect]
     Indication: MULTIPLE SCLEROSIS
     Dosage: 10 UG QW IM; 15 UG QW IM; 30 UG QW IM
     Route: 030
     Dates: start: 20050401, end: 20050706
  4. NEURONTIN [Concomitant]
  5. BACLOFEN [Concomitant]
  6. DIURETIC (NOS) [Concomitant]
  7. ALLEGRA [Concomitant]
  8. NASONEX [Concomitant]

REACTIONS (4)
  - CONDITION AGGRAVATED [None]
  - LOSS OF CONSCIOUSNESS [None]
  - MULTIPLE SCLEROSIS [None]
  - PYREXIA [None]
